FAERS Safety Report 22337032 (Version 2)
Quarter: 2023Q2

REPORT INFORMATION
  Report Type: Report from Study
  Country: IT (occurrence: IT)
  Receive Date: 20230518
  Receipt Date: 20230602
  Transmission Date: 20230722
  Serious: Yes (Hospitalization, Other)
  Sender: FDA-Public Use
  Company Number: IT-JNJFOC-20201225640

PATIENT
  Age: 16 Year
  Sex: Female
  Weight: 55 kg

DRUGS (32)
  1. PLACEBO [Suspect]
     Active Substance: UNSPECIFIED INGREDIENT
     Indication: Major depression
     Dates: start: 20201203, end: 20201228
  2. PLACEBO [Suspect]
     Active Substance: UNSPECIFIED INGREDIENT
     Indication: Suicidal ideation
  3. SERTRALINE [Concomitant]
     Active Substance: SERTRALINE HYDROCHLORIDE
     Indication: Major depression
     Route: 048
     Dates: start: 20201127, end: 20201207
  4. SERTRALINE [Concomitant]
     Active Substance: SERTRALINE HYDROCHLORIDE
     Route: 048
     Dates: start: 20201208, end: 20210106
  5. SERTRALINE [Concomitant]
     Active Substance: SERTRALINE HYDROCHLORIDE
     Route: 048
     Dates: start: 20210107, end: 20210125
  6. SERTRALINE [Concomitant]
     Active Substance: SERTRALINE HYDROCHLORIDE
     Route: 048
     Dates: start: 20210126, end: 20210201
  7. SERTRALINE [Concomitant]
     Active Substance: SERTRALINE HYDROCHLORIDE
     Route: 048
     Dates: start: 20210202, end: 20210208
  8. SERTRALINE [Concomitant]
     Active Substance: SERTRALINE HYDROCHLORIDE
     Route: 048
     Dates: start: 20210209
  9. SERTRALINE [Concomitant]
     Active Substance: SERTRALINE HYDROCHLORIDE
     Route: 048
     Dates: start: 20210317
  10. CETIRIZINA (CETIREX) [Concomitant]
     Indication: Rhinorrhoea
     Route: 048
     Dates: start: 20201204, end: 20201204
  11. CETIRIZINA (CETIREX) [Concomitant]
     Indication: Headache
     Route: 048
     Dates: start: 20210105, end: 20210105
  12. CETIRIZINA (CETIREX) [Concomitant]
     Indication: Rhinitis allergic
     Route: 048
     Dates: start: 20210106, end: 20210106
  13. CETIRIZINA (CETIREX) [Concomitant]
     Indication: Sinusitis
     Route: 048
     Dates: start: 20210109, end: 20210109
  14. QUETIAPINE [Concomitant]
     Active Substance: QUETIAPINE
     Indication: Antidepressant therapy
     Route: 048
     Dates: start: 20201205, end: 20201206
  15. QUETIAPINE [Concomitant]
     Active Substance: QUETIAPINE
     Indication: Insomnia
     Route: 048
     Dates: start: 20201207, end: 20210105
  16. QUETIAPINE [Concomitant]
     Active Substance: QUETIAPINE
     Indication: Anxiety
     Route: 048
     Dates: start: 20210106, end: 20210121
  17. QUETIAPINE [Concomitant]
     Active Substance: QUETIAPINE
     Indication: Suicide attempt
     Route: 048
     Dates: start: 20210122, end: 20210201
  18. QUETIAPINE [Concomitant]
     Active Substance: QUETIAPINE
     Route: 048
     Dates: start: 20210202, end: 20210214
  19. QUETIAPINE [Concomitant]
     Active Substance: QUETIAPINE
     Route: 048
     Dates: start: 20210215
  20. QUETIAPINE [Concomitant]
     Active Substance: QUETIAPINE
     Route: 048
     Dates: start: 20210221, end: 20210221
  21. QUETIAPINE [Concomitant]
     Active Substance: QUETIAPINE
     Route: 048
  22. ACETAMINOPHEN [Concomitant]
     Active Substance: ACETAMINOPHEN
     Indication: Dysmenorrhoea
     Route: 048
     Dates: start: 20201212, end: 20201213
  23. LORAZEPAM [Concomitant]
     Active Substance: LORAZEPAM
     Indication: Insomnia
     Route: 048
     Dates: start: 20201124
  24. LORAZEPAM [Concomitant]
     Active Substance: LORAZEPAM
     Indication: Intentional self-injury
     Route: 048
     Dates: start: 20201203, end: 20201203
  25. LORAZEPAM [Concomitant]
     Active Substance: LORAZEPAM
     Indication: Psychomotor hyperactivity
     Route: 048
     Dates: start: 20201203
  26. LORAZEPAM [Concomitant]
     Active Substance: LORAZEPAM
     Indication: Suicide attempt
     Route: 048
     Dates: start: 20201211, end: 20201211
  27. LORAZEPAM [Concomitant]
     Active Substance: LORAZEPAM
     Route: 030
     Dates: start: 20201212, end: 20201212
  28. LORAZEPAM [Concomitant]
     Active Substance: LORAZEPAM
     Route: 048
     Dates: start: 20210101, end: 20210101
  29. LORAZEPAM [Concomitant]
     Active Substance: LORAZEPAM
     Dosage: 0.5/1 MG
     Route: 048
     Dates: start: 20210107
  30. ALPRAZOLAM [Concomitant]
     Active Substance: ALPRAZOLAM
     Indication: Tachycardia
     Route: 048
     Dates: start: 20201205, end: 20201205
  31. IBUPROFEN [Concomitant]
     Active Substance: IBUPROFEN
     Indication: Dysmenorrhoea
     Route: 048
     Dates: start: 20210115, end: 20210117
  32. IBUPROFEN [Concomitant]
     Active Substance: IBUPROFEN
     Route: 048
     Dates: start: 20210120, end: 20210125

REACTIONS (2)
  - Suicide attempt [Recovered/Resolved]
  - Suicidal ideation [Recovered/Resolved]

NARRATIVE: CASE EVENT DATE: 20210106
